FAERS Safety Report 17768073 (Version 1)
Quarter: 2020Q2

REPORT INFORMATION
  Report Type: Spontaneous
  Country: US (occurrence: US)
  Receive Date: 20200511
  Receipt Date: 20200511
  Transmission Date: 20200714
  Serious: No
  Sender: FDA-Public Use
  Company Number: US-TEVA-2020-US-1234376

PATIENT

DRUGS (1)
  1. TRAZODONE HCL TEVA [Suspect]
     Active Substance: TRAZODONE HYDROCHLORIDE
     Dosage: 150 MG
     Route: 048

REACTIONS (3)
  - Product shape issue [Unknown]
  - Wrong technique in product usage process [Unknown]
  - Foreign body [Unknown]
